FAERS Safety Report 6246323-5 (Version None)
Quarter: 2009Q2

REPORT INFORMATION
  Report Type: 
  Country: None (occurrence: None)
  Receive Date: 20090624
  Receipt Date: 20090624
  Transmission Date: 20091009
  Serious: Yes (Hospitalization)
  Sender: FDA-Public Use
  Company Number: None

PATIENT
  Sex: Male
  Weight: 77.3 kg

DRUGS (9)
  1. AVASTIN [Suspect]
     Indication: HEAD AND NECK CANCER
     Dosage: 15 MG/KG Q 3 WEEKS INTRAVENOUS (NOT OF B
     Route: 042
     Dates: start: 20090318, end: 20090610
  2. ZOFRAN [Concomitant]
  3. FENTANYL [Concomitant]
  4. MORPHINE [Concomitant]
  5. LORAZEPAM [Concomitant]
  6. LEXAPRO [Concomitant]
  7. FOLIC ACID [Concomitant]
  8. NEXIUM [Concomitant]
  9. NUTREN [Concomitant]

REACTIONS (4)
  - CONSTIPATION [None]
  - NAUSEA [None]
  - PAIN [None]
  - VOMITING [None]
